FAERS Safety Report 7683800-4 (Version None)
Quarter: 2011Q3

REPORT INFORMATION
  Report Type: 
  Country: None (occurrence: None)
  Receive Date: 20110815
  Receipt Date: 20110804
  Transmission Date: 20111222
  Serious: Yes (Other)
  Sender: FDA-Public Use
  Company Number: US-ASTRAZENECA-2011SE47177

PATIENT
  Age: 62 Year
  Sex: Female

DRUGS (1)
  1. CRESTOR [Suspect]
     Route: 048

REACTIONS (5)
  - DYSSTASIA [None]
  - SURGERY [None]
  - SPINAL DISORDER [None]
  - BACK INJURY [None]
  - INTERVERTEBRAL DISC DISORDER [None]
